FAERS Safety Report 5406653-3 (Version None)
Quarter: 2007Q3

REPORT INFORMATION
  Report Type: 
  Country: None (occurrence: None)
  Receive Date: 20070806
  Receipt Date: 20070726
  Transmission Date: 20080115
  Serious: Yes (Hospitalization)
  Sender: FDA-Public Use
  Company Number: IE-PFIZER INC-2007063575

PATIENT
  Sex: Male

DRUGS (1)
  1. LYRICA [Suspect]
     Indication: CONNECTIVE TISSUE DISORDER
     Route: 048

REACTIONS (2)
  - LOSS OF CONSCIOUSNESS [None]
  - RESPIRATORY ARREST [None]
